FAERS Safety Report 18780413 (Version 1)
Quarter: 2021Q1

REPORT INFORMATION
  Report Type: Spontaneous
  Country: US (occurrence: US)
  Receive Date: 20210122
  Receipt Date: 20210122
  Transmission Date: 20210419
  Serious: Yes (Disabling)
  Sender: FDA-Public Use
  Company Number: None

PATIENT
  Age: 30 Year
  Sex: Female
  Weight: 72 kg

DRUGS (7)
  1. ATARAX [Concomitant]
     Active Substance: HYDROXYZINE HYDROCHLORIDE
  2. PROVIGIL [Concomitant]
     Active Substance: MODAFINIL
  3. GEODON [Suspect]
     Active Substance: ZIPRASIDONE HYDROCHLORIDE\ZIPRASIDONE MESYLATE
  4. GABAPENTIN. [Suspect]
     Active Substance: GABAPENTIN
     Indication: BIPOLAR DISORDER
     Dosage: ?          QUANTITY:200 TABLET(S);?
     Route: 048
     Dates: start: 20200415, end: 20200423
  5. ZYPREXA [Concomitant]
     Active Substance: OLANZAPINE
  6. TOPOIRATE [Concomitant]
  7. ATIVAN [Concomitant]
     Active Substance: LORAZEPAM

REACTIONS (3)
  - Eye inflammation [None]
  - Eye pain [None]
  - Wrong product administered [None]

NARRATIVE: CASE EVENT DATE: 20200418
